FAERS Safety Report 25305863 (Version 1)
Quarter: 2025Q2

REPORT INFORMATION
  Report Type: Spontaneous
  Country: FR (occurrence: FR)
  Receive Date: 20250513
  Receipt Date: 20250513
  Transmission Date: 20250717
  Serious: Yes (Death, Congenital Anomaly)
  Sender: ASCEND THERAPEUTICS US, LLC
  Company Number: FR-Ascend Therapeutics US, LLC-2176604

PATIENT

DRUGS (11)
  1. ESTROGEL [Suspect]
     Active Substance: ESTRADIOL
     Indication: Product used for unknown indication
     Dates: start: 2024, end: 202411
  2. PROGESTERONE [Suspect]
     Active Substance: PROGESTERONE
     Dates: start: 2024, end: 202411
  3. FILGRASTIM [Suspect]
     Active Substance: FILGRASTIM
     Dates: start: 202408, end: 202410
  4. CHOLECALCIFEROL [Suspect]
     Active Substance: CHOLECALCIFEROL
     Dates: start: 20240825, end: 20241108
  5. ASPIRIN [Suspect]
     Active Substance: ASPIRIN
     Dates: start: 2024, end: 20241108
  6. VITAMIN E [Suspect]
     Active Substance: .ALPHA.-TOCOPHEROL
     Dates: start: 202408, end: 20241108
  7. LOVENOX [Suspect]
     Active Substance: ENOXAPARIN SODIUM
     Dates: start: 202408, end: 20241108
  8. PREDNISONE [Suspect]
     Active Substance: PREDNISONE
     Dates: start: 202408, end: 20241108
  9. HYDROXYCHLOROQUINE SULFATE [Suspect]
     Active Substance: HYDROXYCHLOROQUINE SULFATE
     Dates: start: 202408, end: 20241108
  10. METFORMIN HYDROCHLORIDE [Suspect]
     Active Substance: METFORMIN HYDROCHLORIDE
     Dates: start: 20240825, end: 202411
  11. ESTRADIOL [Suspect]
     Active Substance: ESTRADIOL
     Dates: start: 2024, end: 202411

REACTIONS (2)
  - Multiple congenital abnormalities [Fatal]
  - Foetal exposure during pregnancy [Recovered/Resolved]

NARRATIVE: CASE EVENT DATE: 20240801
